FAERS Safety Report 8619433-2 (Version None)
Quarter: 2012Q3

REPORT INFORMATION
  Report Type: 
  Country: None (occurrence: None)
  Receive Date: 20120824
  Receipt Date: 20120820
  Transmission Date: 20120928
  Serious: Yes (Hospitalization)
  Sender: FDA-Public Use
  Company Number: US-B.I. PHARMACEUTICALS,INC./RIDGEFIELD-2012-BP-20249BP

PATIENT
  Age: 72 Year
  Sex: Female
  Weight: 70 kg

DRUGS (10)
  1. ASPIRIN [Concomitant]
     Indication: CARDIAC DISORDER
     Dosage: 325 MG
     Route: 048
  2. SPIRIVA [Suspect]
     Indication: EMPHYSEMA
     Dosage: 18 MCG
     Dates: start: 20070101
  3. ATORVASTATIN CALCIUM [Concomitant]
     Indication: CARDIAC DISORDER
     Dosage: 10 MG
     Route: 048
  4. VIT D3 [Concomitant]
     Indication: ROUTINE HEALTH MAINTENANCE
     Dosage: 1000 U
     Route: 048
  5. METOPROLOL TARTRATE [Concomitant]
     Indication: HEART RATE INCREASED
     Dosage: 50 MG
     Route: 048
  6. FENOFIBRATE [Concomitant]
     Indication: CARDIAC DISORDER
     Dosage: 150 MG
     Route: 048
  7. SIIMVASTATIN [Concomitant]
     Indication: BLOOD CHOLESTEROL ABNORMAL
     Dosage: 20 MG
     Route: 048
  8. TEMAZEPAM [Concomitant]
     Indication: SLEEP DISORDER
     Dosage: 15 MG
     Route: 048
  9. LEVOTHYROXINE SODIUM [Concomitant]
     Indication: HYPOTHYROIDISM
     Dosage: 0.075 MCG
     Route: 048
  10. LISINOPRIL [Concomitant]
     Indication: CARDIAC DISORDER
     Dosage: 10 MG
     Route: 048

REACTIONS (5)
  - BLOOD PRESSURE INCREASED [None]
  - WEIGHT INCREASED [None]
  - RENAL DISORDER [None]
  - CREATININE RENAL CLEARANCE ABNORMAL [None]
  - HEPATIC ENZYME INCREASED [None]
